FAERS Safety Report 9039588 (Version 1)
Quarter: 2013Q1

REPORT INFORMATION
  Report Type: Report from Study
  Country: US (occurrence: US)
  Receive Date: 20130129
  Receipt Date: 20130129
  Transmission Date: 20140127
  Serious: No
  Sender: FDA-Public Use
  Company Number: US-ABBOTT-12P-163-0941983-00

PATIENT
  Age: 51 Year
  Sex: Female

DRUGS (15)
  1. HUMIRA 40 MG/0.8 ML PEN [Suspect]
     Indication: RHEUMATOID ARTHRITIS
     Dates: start: 201109
  2. HUMIRA 40 MG/0.8 ML PEN [Suspect]
     Indication: PSORIASIS
  3. CELEBREX [Concomitant]
     Indication: PRODUCT USED FOR UNKNOWN INDICATION
  4. PREDNISONE [Concomitant]
     Indication: PRODUCT USED FOR UNKNOWN INDICATION
  5. OXYCODONE [Concomitant]
     Indication: PAIN
  6. METHOTREXATE [Concomitant]
     Indication: PRODUCT USED FOR UNKNOWN INDICATION
     Dosage: 8 PILLS ONCE PER WEEK
  7. TIZANIDINE [Concomitant]
     Indication: PRODUCT USED FOR UNKNOWN INDICATION
  8. BUSPAR [Concomitant]
     Indication: MIGRAINE
  9. LORAZEPAM [Concomitant]
     Indication: DEPRESSION
  10. GEODON [Concomitant]
     Indication: DEPRESSION
     Dosage: 60MG DAILY
  11. CLONIDINE [Concomitant]
     Indication: DEPRESSION
  12. FLOVENT [Concomitant]
     Indication: ASTHMA
  13. VENTOLIN [Concomitant]
     Indication: ASTHMA
  14. PRO-AIR [Concomitant]
     Indication: ASTHMA
  15. ALBUTEROL [Concomitant]
     Indication: ASTHMA

REACTIONS (2)
  - Feeling abnormal [Not Recovered/Not Resolved]
  - Arthralgia [Not Recovered/Not Resolved]
